FAERS Safety Report 16025902 (Version 2)
Quarter: 2019Q1

REPORT INFORMATION
  Report Type: Spontaneous
  Country: AU (occurrence: AU)
  Receive Date: 20190302
  Receipt Date: 20190315
  Transmission Date: 20190418
  Serious: Yes (Other)
  Sender: FDA-Public Use
  Company Number: AU-CELLTRION INC.-2019AU019051

PATIENT

DRUGS (3)
  1. THIOGUANINE [Concomitant]
     Active Substance: THIOGUANINE
     Dosage: UNK
     Dates: start: 201711
  2. INFLECTRA [Suspect]
     Active Substance: INFLIXIMAB-DYYB
     Indication: PANCREATIC DISORDER
     Dosage: 10 MG/KG (800 MG), EVERY 8 WEEKS
     Route: 065
  3. INFLECTRA [Suspect]
     Active Substance: INFLIXIMAB-DYYB
     Indication: CROHN^S DISEASE
     Dosage: 10 MG/KG (800 MG), EVERY 6 WEEKS
     Route: 065

REACTIONS (5)
  - Product use issue [Unknown]
  - Drug level below therapeutic [Unknown]
  - Condition aggravated [Unknown]
  - C-reactive protein increased [Unknown]
  - Crohn^s disease [Unknown]
